FAERS Safety Report 9426239 (Version 1)
Quarter: 2013Q3

REPORT INFORMATION
  Report Type: Spontaneous
  Country: US (occurrence: US)
  Receive Date: 20130730
  Receipt Date: 20130730
  Transmission Date: 20140515
  Serious: Yes (Hospitalization)
  Sender: FDA-Public Use
  Company Number: US-MERCK-1307USA015476

PATIENT
  Age: 16 Year
  Sex: Female

DRUGS (3)
  1. SAPHRIS [Suspect]
     Indication: BIPOLAR I DISORDER
     Dosage: 5 MG IN THE EVENING, HS
     Route: 060
     Dates: start: 20130711
  2. SAPHRIS [Suspect]
     Dosage: 5 MG, UNK
     Route: 060
     Dates: start: 20130720
  3. SAPHRIS [Suspect]
     Indication: BIPOLAR I DISORDER
     Dosage: UNK

REACTIONS (5)
  - Suicidal ideation [Not Recovered/Not Resolved]
  - Self-injurious ideation [Not Recovered/Not Resolved]
  - Drug administered to patient of inappropriate age [Unknown]
  - Product taste abnormal [Unknown]
  - Product blister packaging issue [Unknown]
